FAERS Safety Report 7452079-0 (Version None)
Quarter: 2011Q2

REPORT INFORMATION
  Report Type: 
  Country: None (occurrence: None)
  Receive Date: 20110502
  Receipt Date: 20110425
  Transmission Date: 20111010
  Serious: Yes (Other)
  Sender: FDA-Public Use
  Company Number: JP-ELI_LILLY_AND_COMPANY-JP201104006642

PATIENT
  Age: 27 Year
  Sex: Male

DRUGS (1)
  1. HUMALOG [Suspect]
     Dosage: 600 IU, UNK
     Dates: start: 20110401

REACTIONS (3)
  - SUICIDE ATTEMPT [None]
  - HYPOGLYCAEMIA [None]
  - INTENTIONAL OVERDOSE [None]
